FAERS Safety Report 4652052-1 (Version None)
Quarter: 2005Q2

REPORT INFORMATION
  Report Type: 
  Country: None (occurrence: None)
  Receive Date: 20050502
  Receipt Date: 20050502
  Transmission Date: 20051028
  Serious: No
  Sender: FDA-Public Use
  Company Number: None

PATIENT
  Sex: Female
  Weight: 95.3 kg

DRUGS (1)
  1. ACETADOTE [Suspect]
     Indication: OVERDOSE
     Dosage: 150MG/KG   LOADING DOSE   INTRAVENOU
     Route: 042
     Dates: start: 20050320, end: 20050320

REACTIONS (3)
  - HYPOTENSION [None]
  - RESPIRATORY DEPRESSION [None]
  - URTICARIA [None]
